FAERS Safety Report 21183089 (Version 1)
Quarter: 2022Q3

REPORT INFORMATION
  Report Type: Spontaneous
  Country: US (occurrence: US)
  Receive Date: 20220808
  Receipt Date: 20220808
  Transmission Date: 20221027
  Serious: Yes (Other)
  Sender: FDA-Public Use
  Company Number: US-SA-SAC20220804001318

PATIENT
  Age: 66 Year
  Sex: Male

DRUGS (1)
  1. ZANTAC [Suspect]
     Active Substance: RANITIDINE HYDROCHLORIDE
     Dosage: 25 MG, QD
     Route: 065
     Dates: start: 199101, end: 201812

REACTIONS (2)
  - Oesophageal carcinoma [Not Recovered/Not Resolved]
  - Gastric cancer stage II [Not Recovered/Not Resolved]

NARRATIVE: CASE EVENT DATE: 20210701
